FAERS Safety Report 9441479 (Version 1)
Quarter: 2013Q3

REPORT INFORMATION
  Report Type: Spontaneous
  Country: GB (occurrence: GB)
  Receive Date: 20130805
  Receipt Date: 20130805
  Transmission Date: 20140515
  Serious: Yes (Hospitalization)
  Sender: FDA-Public Use
  Company Number: GB-PFIZER INC-2013220789

PATIENT
  Age: 25 Year
  Sex: Female
  Weight: 60 kg

DRUGS (2)
  1. SULFASALAZINE [Suspect]
     Indication: ARTHRITIS REACTIVE
     Dosage: THREE TABLETS TWICE A DAY
     Route: 048
  2. PREDNISOLONE [Concomitant]

REACTIONS (1)
  - Mania [Recovering/Resolving]
